FAERS Safety Report 6162648-6 (Version None)
Quarter: 2009Q2

REPORT INFORMATION
  Report Type: 
  Country: None (occurrence: None)
  Receive Date: 20090421
  Receipt Date: 20080619
  Transmission Date: 20091009
  Serious: No
  Sender: FDA-Public Use
  Company Number: US-ASTRAZENECA-2008UW12366

PATIENT
  Age: 78 Year
  Sex: Male

DRUGS (12)
  1. CASODEX [Suspect]
     Route: 048
     Dates: end: 20080613
  2. PLAVIX [Concomitant]
  3. LEXAPRO [Concomitant]
  4. CALCIUM [Concomitant]
  5. FISH OIL [Concomitant]
  6. FENTANYL TRANSDERMAL SYSTEM [Concomitant]
  7. MULTI-VITAMIN [Concomitant]
  8. SIMVASTATIN [Concomitant]
  9. ASPIRIN [Concomitant]
  10. UROXATRAL [Concomitant]
  11. OXYCODONE HCL [Concomitant]
  12. AMBIEN [Concomitant]

REACTIONS (1)
  - LIMB DISCOMFORT [None]
